FAERS Safety Report 14041418 (Version 2)
Quarter: 2017Q4

REPORT INFORMATION
  Report Type: Spontaneous
  Country: KR (occurrence: KR)
  Receive Date: 20171004
  Receipt Date: 20171113
  Transmission Date: 20180321
  Serious: Yes (Other)
  Sender: FDA-Public Use
  Company Number: PHHY2017KR142765

PATIENT
  Age: 41 Year
  Sex: Male

DRUGS (2)
  1. OXALIPLATIN. [Suspect]
     Active Substance: OXALIPLATIN
     Indication: GASTRIC CANCER STAGE III
     Route: 065
  2. CAPECITABINE. [Concomitant]
     Active Substance: CAPECITABINE
     Indication: GASTRIC CANCER STAGE III
     Dosage: UNK
     Route: 065

REACTIONS (4)
  - Portal shunt [Unknown]
  - Hepatic mass [Recovered/Resolved]
  - Product use in unapproved indication [Unknown]
  - Venoocclusive liver disease [Unknown]
